FAERS Safety Report 7424531-5 (Version None)
Quarter: 2011Q2

REPORT INFORMATION
  Report Type: 
  Country: None (occurrence: None)
  Receive Date: 20110419
  Receipt Date: 20110411
  Transmission Date: 20111010
  Serious: Yes (Hospitalization)
  Sender: FDA-Public Use
  Company Number: IT-BRISTOL-MYERS SQUIBB COMPANY-15669450

PATIENT
  Age: 82 Year
  Sex: Female

DRUGS (2)
  1. COUMADIN [Suspect]
     Indication: ANTICOAGULANT THERAPY
     Dosage: 1DF:1UNIT
     Route: 048
     Dates: start: 20101005, end: 20110329
  2. KONAKION [Suspect]
     Indication: EPISTAXIS
     Dosage: 1DF=10MG/ML ORAL AND INJECTABLE SOLUTION 1 UNIT/DAY
     Route: 030
     Dates: start: 20110329, end: 20110330

REACTIONS (2)
  - EPISTAXIS [None]
  - ISCHAEMIC STROKE [None]
